FAERS Safety Report 20921999 (Version 1)
Quarter: 2022Q2

REPORT INFORMATION
  Report Type: Spontaneous
  Country: US (occurrence: None)
  Receive Date: 20220607
  Receipt Date: 20220607
  Transmission Date: 20220721
  Serious: No
  Sender: FDA-Public Use
  Company Number: 2022A199215

PATIENT
  Age: 23965 Day

DRUGS (1)
  1. SYMBICORT [Suspect]
     Active Substance: BUDESONIDE\FORMOTEROL FUMARATE DIHYDRATE
     Indication: Chronic obstructive pulmonary disease
     Dosage: SYMBICORT 160/4.5MCG 2 PUFFS A TWICE A DAY SINCE ??-???-2017
     Route: 055
     Dates: start: 2017

REACTIONS (6)
  - Cough [Unknown]
  - Device use issue [Unknown]
  - Drug dose omission by device [Unknown]
  - Wrong technique in device usage process [Unknown]
  - Product dose omission in error [Unknown]
  - Device malfunction [Unknown]

NARRATIVE: CASE EVENT DATE: 20220522
